FAERS Safety Report 4976081-3 (Version None)
Quarter: 2006Q2

REPORT INFORMATION
  Report Type: 
  Country: None (occurrence: None)
  Receive Date: 20060412
  Receipt Date: 20060330
  Transmission Date: 20061013
  Serious: Yes (Hospitalization, Other)
  Sender: FDA-Public Use
  Company Number: 8015737

PATIENT
  Age: 14 Year
  Sex: Male
  Weight: 36.5 kg

DRUGS (4)
  1. KEPPRA [Suspect]
     Indication: EPILEPSY
     Dosage: 750 MG 2/D PO
     Route: 048
     Dates: start: 20050101, end: 20060326
  2. VALPROATE SODIUM [Concomitant]
  3. LORAZEPAM [Concomitant]
  4. CLOBAZAM [Concomitant]

REACTIONS (3)
  - CONDITION AGGRAVATED [None]
  - CONVULSION [None]
  - PSYCHOTIC DISORDER [None]
